FAERS Safety Report 5229350-6 (Version None)
Quarter: 2007Q1

REPORT INFORMATION
  Report Type: 
  Country: None (occurrence: None)
  Receive Date: 20061201
  Receipt Date: 20060201
  Transmission Date: 20070707
  Serious: Yes (Other)
  Sender: FDA-Public Use
  Company Number: 2006-138037-NL

PATIENT
  Age: 41 Year
  Sex: Female
  Weight: 68.5 kg

DRUGS (3)
  1. NUVARING [Suspect]
     Indication: DYSMENORRHOEA
     Dosage: VAGINAL, 3 WEEKS IN, 1 WEEK OUT
     Route: 067
     Dates: start: 20051001, end: 20060130
  2. NUVARING [Suspect]
     Indication: MENSTRUATION IRREGULAR
     Dosage: VAGINAL, 3 WEEKS IN, 1 WEEK OUT
     Route: 067
     Dates: start: 20051001, end: 20060130
  3. SARAFEM [Concomitant]

REACTIONS (1)
  - PULMONARY EMBOLISM [None]
